FAERS Safety Report 4581992-7 (Version None)
Quarter: 2005Q1

REPORT INFORMATION
  Report Type: 
  Country: None (occurrence: None)
  Receive Date: 20050119
  Receipt Date: 20041007
  Transmission Date: 20050727
  Serious: Yes (Hospitalization)
  Sender: FDA-Public Use
  Company Number: US-JNJFOC-20040907774

PATIENT
  Age: 62 Year
  Sex: Female

DRUGS (1)
  1. DOXIL [Suspect]
     Indication: OVARIAN CANCER
     Dosage: 92MG, INTRAVENOUSLY, X4 CYCLES
     Dates: start: 20040510, end: 20040806

REACTIONS (2)
  - HERPES VIRUS INFECTION [None]
  - OESOPHAGITIS [None]
